FAERS Safety Report 16236290 (Version 1)
Quarter: 2019Q2

REPORT INFORMATION
  Report Type: Report from Study
  Country: DE (occurrence: DE)
  Receive Date: 20190425
  Receipt Date: 20190425
  Transmission Date: 20190711
  Serious: Yes (Hospitalization)
  Sender: FDA-Public Use
  Company Number: DE-ROCHE-2296667

PATIENT
  Age: 64 Year
  Sex: Male
  Weight: 44 kg

DRUGS (6)
  1. DEPOT-H-INSULIN [Concomitant]
     Route: 058
     Dates: start: 20160904
  2. ALT-INSULIN [Concomitant]
     Active Substance: FRUCTOSE\INSULIN BEEF
     Route: 058
     Dates: start: 20160904
  3. VENETOCLAX. [Suspect]
     Active Substance: VENETOCLAX
     Indication: CHRONIC LYMPHOCYTIC LEUKAEMIA
     Dosage: DOSE- 1: 20 MG IN A CYCLE(AS PER PROTOCOL).  ??ON 07/APR/2019, HE RECEIVED LAST DOSE OF VENETOCLAX
     Route: 048
  4. METOPROLOL. [Concomitant]
     Active Substance: METOPROLOL
     Route: 065
     Dates: start: 19880404
  5. RITUXIMAB. [Suspect]
     Active Substance: RITUXIMAB
     Indication: CHRONIC LYMPHOCYTIC LEUKAEMIA
     Dosage: DOSE- 1: 375 MG/M2 IN A CYCLE(AS PER PROTOCOL).  ?ON 21/DEC/2018, HE RECEIVED LAST DOSE OF RITUXIMA
     Route: 041
     Dates: start: 20180801
  6. TAMSULOSIN [Concomitant]
     Active Substance: TAMSULOSIN
     Route: 048
     Dates: start: 20160404

REACTIONS (1)
  - Infectious pleural effusion [Not Recovered/Not Resolved]

NARRATIVE: CASE EVENT DATE: 20190401
